FAERS Safety Report 6309193-2 (Version None)
Quarter: 2009Q3

REPORT INFORMATION
  Report Type: 
  Country: None (occurrence: None)
  Receive Date: 20090814
  Receipt Date: 20071126
  Transmission Date: 20100115
  Serious: Yes (Other)
  Sender: FDA-Public Use
  Company Number: US-ASTRAZENECA-2007UW09680

PATIENT
  Age: 16813 Day
  Sex: Female

DRUGS (19)
  1. SEROQUEL [Suspect]
     Indication: BIPOLAR DISORDER
     Route: 048
     Dates: start: 20030101, end: 20070208
  2. SEROQUEL [Suspect]
     Indication: DEPRESSION
     Route: 048
     Dates: start: 20030101, end: 20070208
  3. SEROQUEL [Suspect]
     Indication: SCHIZOPHRENIA
     Route: 048
     Dates: start: 20030101, end: 20070208
  4. SEROQUEL [Suspect]
     Dosage: 50 MG - 600 MG
     Route: 048
     Dates: start: 20030917
  5. SEROQUEL [Suspect]
     Dosage: 50 MG - 600 MG
     Route: 048
     Dates: start: 20030917
  6. SEROQUEL [Suspect]
     Dosage: 50 MG - 600 MG
     Route: 048
     Dates: start: 20030917
  7. ZYPREXA [Suspect]
     Dates: start: 20030101, end: 20050101
  8. ZYPREXA [Suspect]
     Dates: start: 20030606
  9. RISPERDAL [Suspect]
     Dates: start: 19960613
  10. TRAZODONE HCL [Concomitant]
     Dosage: 300 MG-600 MG DAILY
     Dates: start: 19960613
  11. KLONOPIN [Concomitant]
     Dosage: STRENGTH 0.5 MG, 1 MG  DOSE 0.5 MG-3 MG DAILY AS NEEDED
     Dates: start: 19960617
  12. PRINIVIL [Concomitant]
     Indication: HYPERTENSION
     Route: 048
     Dates: start: 20020107
  13. WELLBUTRIN XL [Concomitant]
     Dosage: STRENGTH 150 MG, 300 MG  DOSE 150-300 MG DAILY
     Route: 048
     Dates: start: 20051221
  14. REMERON [Concomitant]
     Dosage: STRENGTH 30 MG, 45 MG  DOSE 30-45 MG AT NIGHT
     Route: 048
     Dates: start: 20050412
  15. XANAX [Concomitant]
     Dates: start: 20051221
  16. PROTONIX [Concomitant]
     Route: 048
     Dates: start: 20051221
  17. ZOCOR [Concomitant]
     Dosage: STRENGTH 10 MG, 40 MG  DOSE 10-40 MG DAILY
     Route: 048
     Dates: start: 20051221
  18. LASIX [Concomitant]
     Route: 048
     Dates: start: 20050414
  19. LITHIUM [Concomitant]

REACTIONS (3)
  - DIABETIC NEUROPATHY [None]
  - NEUROPATHY PERIPHERAL [None]
  - TYPE 2 DIABETES MELLITUS [None]
